FAERS Safety Report 5085242-7 (Version None)
Quarter: 2006Q3

REPORT INFORMATION
  Report Type: 
  Country: None (occurrence: None)
  Receive Date: 20060731
  Receipt Date: 20050818
  Transmission Date: 20061208
  Serious: Yes (Life-Threatening, Other)
  Sender: FDA-Public Use
  Company Number: 200511284BWH

PATIENT
  Age: 45 Year
  Sex: Male

DRUGS (1)
  1. AVELOX [Suspect]
     Indication: SINUSITIS
     Dosage: ORAL
     Route: 048
     Dates: start: 20050401

REACTIONS (1)
  - ANAPHYLACTIC SHOCK [None]
